FAERS Safety Report 24919205 (Version 2)
Quarter: 2025Q1

REPORT INFORMATION
  Report Type: Spontaneous
  Country: BR (occurrence: BR)
  Receive Date: 20250204
  Receipt Date: 20250217
  Transmission Date: 20250408
  Serious: Yes (Other)
  Sender: Harrow Health
  Company Number: BR-IMP-2025000078

PATIENT
  Age: 22 Year
  Sex: Male
  Weight: 96 kg

DRUGS (1)
  1. MAXIDEX [Suspect]
     Active Substance: DEXAMETHASONE
     Indication: Symptomatic treatment
     Route: 065
     Dates: start: 202212, end: 202311

REACTIONS (6)
  - Blindness [Unknown]
  - Glaucoma [Unknown]
  - Optic nerve injury [Unknown]
  - Prescription drug used without a prescription [Unknown]
  - Intraocular pressure test abnormal [Unknown]
  - Intentional product misuse [Unknown]
